FAERS Safety Report 9985101 (Version 1)
Quarter: 2014Q1

REPORT INFORMATION
  Report Type: Report from Study
  Country: US (occurrence: US)
  Receive Date: 20140307
  Receipt Date: 20140307
  Transmission Date: 20141002
  Serious: No
  Sender: FDA-Public Use
  Company Number: US-ABBVIE-14P-163-1186549-00

PATIENT
  Age: 60 Year
  Sex: Female

DRUGS (26)
  1. HUMIRA [Suspect]
     Indication: RHEUMATOID ARTHRITIS
     Route: 058
     Dates: start: 201311
  2. ADDERALL [Concomitant]
     Indication: PRODUCT USED FOR UNKNOWN INDICATION
  3. ATIVAN [Concomitant]
     Indication: INSOMNIA
     Dosage: 2.5 PILLS AT BEDTIME
  4. FLEXERIL [Concomitant]
     Indication: MYALGIA
  5. ESTRACE [Concomitant]
     Indication: VULVOVAGINAL DRYNESS
     Dosage: MONDAY, WEDNESDAY, SATURDAY
  6. FIORICET [Concomitant]
     Indication: HEADACHE
     Dosage: 50/300/40 MILLIGRAMS; CAPSULE 2-6
  7. FLECTOR [Concomitant]
     Indication: PAIN
  8. PROZAC [Concomitant]
     Indication: ANXIETY
  9. FOLIC ACID [Concomitant]
     Indication: VITAMIN SUPPLEMENTATION
  10. HYDROMORPHONE [Concomitant]
     Indication: PAIN
  11. IMITREX [Concomitant]
     Indication: MIGRAINE
     Route: 058
  12. KLOR-CON [Concomitant]
     Indication: MINERAL SUPPLEMENTATION
  13. METHOTREXATE [Concomitant]
     Indication: RHEUMATOID ARTHRITIS
     Dosage: FRI
  14. NEXIUM [Concomitant]
     Indication: DYSPEPSIA
  15. NITRO [Concomitant]
     Indication: OESOPHAGEAL SPASM
  16. PLAQUENIL [Concomitant]
     Indication: PRODUCT USED FOR UNKNOWN INDICATION
  17. PREDNISONE [Concomitant]
     Indication: RHEUMATOID ARTHRITIS
  18. PROLIA [Concomitant]
     Indication: BONE DISORDER
     Dosage: 2X YEAR; HAD ONE A WEEK OR SO AGO
  19. RELPAX [Concomitant]
     Indication: MIGRAINE
  20. VERAPAMIL [Concomitant]
     Indication: MIGRAINE
  21. VOLTAREN [Concomitant]
     Indication: RHEUMATOID ARTHRITIS
  22. CITRATE + D [Concomitant]
     Indication: PRODUCT USED FOR UNKNOWN INDICATION
  23. VITAMIN D [Concomitant]
     Indication: PRODUCT USED FOR UNKNOWN INDICATION
  24. MULTIVITAMIN [Concomitant]
     Indication: PRODUCT USED FOR UNKNOWN INDICATION
  25. VITAMIN B COMPLEX [Concomitant]
     Indication: PRODUCT USED FOR UNKNOWN INDICATION
  26. PROBIOTICS [Concomitant]
     Indication: PRODUCT USED FOR UNKNOWN INDICATION

REACTIONS (6)
  - Sinus operation [Not Recovered/Not Resolved]
  - Headache [Not Recovered/Not Resolved]
  - Sensation of pressure [Not Recovered/Not Resolved]
  - Facial pain [Not Recovered/Not Resolved]
  - Cough [Not Recovered/Not Resolved]
  - Sinusitis [Recovering/Resolving]
